FAERS Safety Report 6525545-X (Version None)
Quarter: 2009Q4

REPORT INFORMATION
  Report Type: 
  Country: None (occurrence: None)
  Receive Date: 20091214
  Receipt Date: 20090113
  Transmission Date: 20100525
  Serious: Yes (Hospitalization)
  Sender: FDA-Public Use
  Company Number: 608287

PATIENT
  Age: 38 Year
  Sex: Female

DRUGS (4)
  1. PEGASYS [Suspect]
     Indication: HEPATITIS C
     Dates: start: 20060701, end: 20080701
  2. RIBASPHERE [Suspect]
     Indication: HEPATITIS C
     Dosage: 800 MG DAILY
     Dates: start: 20060701, end: 20080701
  3. DILAUDID [Concomitant]
  4. XANAX [Concomitant]

REACTIONS (8)
  - ALOPECIA [None]
  - ANXIETY [None]
  - BIPOLAR I DISORDER [None]
  - HYPOPHAGIA [None]
  - ILL-DEFINED DISORDER [None]
  - THINKING ABNORMAL [None]
  - UNDERWEIGHT [None]
  - VIRAL LOAD INCREASED [None]
